FAERS Safety Report 6512413-2 (Version None)
Quarter: 2009Q4

REPORT INFORMATION
  Report Type: 
  Country: None (occurrence: None)
  Receive Date: 20091222
  Receipt Date: 20091212
  Transmission Date: 20100525
  Serious: Yes (Hospitalization)
  Sender: FDA-Public Use
  Company Number: IN-GENENTECH-296048

PATIENT
  Age: 70 Year
  Sex: Male

DRUGS (1)
  1. ACTIVASE [Suspect]
     Indication: ISCHAEMIC STROKE
     Dosage: 0.9 MG/KG, UNK
     Route: 042
     Dates: start: 20091211, end: 20091211

REACTIONS (2)
  - BLOOD PRESSURE INADEQUATELY CONTROLLED [None]
  - HAEMORRHAGE INTRACRANIAL [None]
